FAERS Safety Report 6411012-0 (Version None)
Quarter: 2009Q4

REPORT INFORMATION
  Report Type: 
  Country: None (occurrence: None)
  Receive Date: 20091022
  Receipt Date: 20091014
  Transmission Date: 20100525
  Serious: Yes (Hospitalization)
  Sender: FDA-Public Use
  Company Number: DE-AMGEN-US311782

PATIENT
  Age: 53 Year
  Sex: Female

DRUGS (7)
  1. ENBREL [Suspect]
     Indication: RHEUMATOID ARTHRITIS
     Route: 058
     Dates: start: 20080501, end: 20090101
  2. ENBREL [Suspect]
     Indication: POLYARTHRITIS
  3. CITALOPRAM HYDROBROMIDE [Concomitant]
     Dosage: UNKNOWN
     Route: 065
  4. TRAMADOL HYDROCHLORIDE [Concomitant]
     Dosage: UNKNOWN
     Route: 065
  5. OMEPRAZOLE [Concomitant]
     Dosage: UNKNOWN
     Route: 065
  6. METHOTREXATE [Concomitant]
     Dosage: UNKNOWN
     Route: 065
  7. CELEBREX [Concomitant]
     Dosage: UNKNOWN
     Route: 065

REACTIONS (5)
  - ARTHRALGIA [None]
  - HYPOAESTHESIA [None]
  - INTERVERTEBRAL DISC PROTRUSION [None]
  - JOINT SWELLING [None]
  - SURGERY [None]
